FAERS Safety Report 13836352 (Version 1)
Quarter: 2017Q3

REPORT INFORMATION
  Report Type: Report from Study
  Country: US (occurrence: US)
  Receive Date: 20170804
  Receipt Date: 20170804
  Transmission Date: 20171127
  Serious: Yes (Other)
  Sender: FDA-Public Use
  Company Number: PHEH2017US024150

PATIENT
  Sex: Female

DRUGS (1)
  1. ILARIS [Suspect]
     Active Substance: CANAKINUMAB
     Indication: HYPER IGD SYNDROME
     Dosage: 100 MG, EVERY 28 DAYS
     Route: 065
     Dates: start: 20170731

REACTIONS (3)
  - Haematemesis [Unknown]
  - Paraesthesia [Unknown]
  - Presyncope [Unknown]

NARRATIVE: CASE EVENT DATE: 20170731
